FAERS Safety Report 6884934-4 (Version None)
Quarter: 2010Q3

REPORT INFORMATION
  Report Type: 
  Country: None (occurrence: None)
  Receive Date: 20100729
  Receipt Date: 20080128
  Transmission Date: 20110219
  Serious: Yes (Hospitalization, Other)
  Sender: FDA-Public Use
  Company Number: US-PFIZER INC-2007079005

PATIENT
  Sex: Female
  Weight: 64 kg

DRUGS (3)
  1. CELEBREX [Suspect]
     Indication: RHEUMATOID ARTHRITIS
     Route: 048
     Dates: start: 20050127
  2. CELEBREX [Suspect]
     Dates: start: 20041001
  3. VIOXX [Suspect]
     Route: 048
     Dates: start: 20001201, end: 20040901

REACTIONS (1)
  - CEREBROVASCULAR ACCIDENT [None]
